FAERS Safety Report 14909982 (Version 1)
Quarter: 2018Q2

REPORT INFORMATION
  Report Type: Spontaneous
  Country: DE (occurrence: DE)
  Receive Date: 20180517
  Receipt Date: 20180517
  Transmission Date: 20180711
  Serious: Yes (Other)
  Sender: FDA-Public Use
  Company Number: DE-MYLANLABS-2018M1032104

PATIENT
  Age: 42 Year
  Sex: Male

DRUGS (9)
  1. MESNA. [Concomitant]
     Active Substance: MESNA
     Indication: PRODUCT USED FOR UNKNOWN INDICATION
     Dosage: ON DAY -3 AND -2 (ALONG WITH IMC REGIMEN)
     Route: 065
  2. ENDOXAN                            /00021101/ [Suspect]
     Active Substance: CYCLOPHOSPHAMIDE
     Indication: PLASMA CELL MYELOMA
     Dosage: ON DAY -3 AND -2 (IMC REGIMEN)
     Route: 041
  3. MELPHALAN. [Suspect]
     Active Substance: MELPHALAN
     Indication: PLASMA CELL MYELOMA
     Dosage: ON DAYS -13, -12 AND -11 (IMC REGIMEN)
     Route: 041
  4. MELPHALAN. [Suspect]
     Active Substance: MELPHALAN
     Dosage: 1 X 15 MG/M2 (MP REGIMEN)12 CYCLICAL
     Route: 042
  5. ADRIAMYCIN [Concomitant]
     Active Substance: DOXORUBICIN HYDROCHLORIDE
     Indication: PLASMA CELL MYELOMA
     Dosage: 4 X 9 MG/M2 (VAD REGIMEN) ,7  CYCLICAL
     Route: 042
  6. DEXAMETHASONE. [Concomitant]
     Active Substance: DEXAMETHASONE
     Indication: PLASMA CELL MYELOMA
     Dosage: 8X40 MG (VAD REGIMEN) 7 CYCLICAL
     Route: 048
  7. PREDNISONE. [Concomitant]
     Active Substance: PREDNISONE
     Indication: PLASMA CELL MYELOMA
     Dosage: 4 X 60 MG/M2 12 CYCLICAL
     Route: 048
  8. IDARUBICIN [Suspect]
     Active Substance: IDARUBICIN
     Indication: PLASMA CELL MYELOMA
     Dosage: ON DAYS -13,-12 AND -11 (IMC REGIMEN)
     Route: 041
  9. VINCRISTINE [Concomitant]
     Active Substance: VINCRISTINE
     Indication: PLASMA CELL MYELOMA
     Dosage: 2 MG 7 CYCLICAL 4 X 0.4 MG (VAD REGIMEN)
     Route: 042

REACTIONS (3)
  - Pyrexia [Unknown]
  - Haematotoxicity [Unknown]
  - Mucosal inflammation [Unknown]
